FAERS Safety Report 9528305 (Version 1)
Quarter: 2013Q1

REPORT INFORMATION
  Report Type: Spontaneous
  Country: US (occurrence: None)
  Receive Date: 20130326
  Receipt Date: 20130326
  Transmission Date: 20140127
  Serious: Yes (Other)
  Sender: FDA-Public Use
  Company Number: 2013US-65557

PATIENT
  Sex: Male

DRUGS (2)
  1. ABSORCIA [Suspect]
     Indication: PRODUCT USED FOR UNKNOWN INDICATION
  2. ABSORCIA [Suspect]
     Indication: PRODUCT USED FOR UNKNOWN INDICATION
     Dates: start: 20130219

REACTIONS (1)
  - Aggression [None]
